FAERS Safety Report 9080958 (Version 1)
Quarter: 2013Q1

REPORT INFORMATION
  Report Type: Report from Study
  Country: US (occurrence: US)
  Receive Date: 20130130
  Receipt Date: 20130130
  Transmission Date: 20140127
  Serious: No
  Sender: FDA-Public Use
  Company Number: US-ABBOTT-12P-163-0964055-00

PATIENT
  Age: 20 Year
  Sex: Male

DRUGS (4)
  1. HUMIRA 40 MG/0.8 ML PEN [Suspect]
     Indication: CROHN^S DISEASE
     Dates: start: 20120718, end: 20120718
  2. HUMIRA 40 MG/0.8 ML PEN [Suspect]
     Dates: start: 20120801
  3. PREDNISONE [Concomitant]
     Indication: CROHN^S DISEASE
     Dosage: 20MG DAILY
  4. UNKNOWN ANXIETY MEDICATION [Concomitant]
     Indication: ANXIETY

REACTIONS (3)
  - Decreased appetite [Not Recovered/Not Resolved]
  - Vomiting [Not Recovered/Not Resolved]
  - Nausea [Not Recovered/Not Resolved]
